FAERS Safety Report 6616909-4 (Version None)
Quarter: 2010Q1

REPORT INFORMATION
  Report Type: 
  Country: None (occurrence: None)
  Receive Date: 20100301
  Receipt Date: 20100216
  Transmission Date: 20100710
  Serious: Yes (Other)
  Sender: FDA-Public Use
  Company Number: 508620

PATIENT
  Age: 61 Year
  Sex: Female
  Weight: 80.3 kg

DRUGS (7)
  1. CARBOPLATIN [Suspect]
     Indication: DISEASE RECURRENCE
     Dosage: 515 MG, 3 WEEK, INTRAVENOUS
     Route: 042
     Dates: start: 20100205, end: 20100205
  2. CARBOPLATIN [Suspect]
     Indication: MALIGNANT PERITONEAL NEOPLASM
     Dosage: 515 MG, 3 WEEK, INTRAVENOUS
     Route: 042
     Dates: start: 20100205, end: 20100205
  3. ZOFRAN [Concomitant]
  4. (DECARDON /00016001/) [Concomitant]
  5. BENADRYL [Concomitant]
  6. RANITIDINE [Concomitant]
  7. PACLITAXEL [Concomitant]

REACTIONS (4)
  - FLUSHING [None]
  - INFUSION RELATED REACTION [None]
  - MUSCLE TIGHTNESS [None]
  - NO REACTION ON PREVIOUS EXPOSURE TO DRUG [None]
